FAERS Safety Report 24894038 (Version 1)
Quarter: 2025Q1

REPORT INFORMATION
  Report Type: Spontaneous
  Country: RU (occurrence: RU)
  Receive Date: 20250128
  Receipt Date: 20250128
  Transmission Date: 20250409
  Serious: Yes (Life-Threatening)
  Sender: RANBAXY
  Company Number: RU-SUN PHARMACEUTICAL INDUSTRIES LTD-2025R1-490350

PATIENT
  Sex: Male
  Weight: 4.22 kg

DRUGS (2)
  1. ASPIRIN [Suspect]
     Active Substance: ASPIRIN
     Indication: Vaginal infection
     Route: 064
  2. MAGNESIUM HYDROXIDE [Suspect]
     Active Substance: MAGNESIUM HYDROXIDE
     Indication: Vaginal infection
     Dosage: 30.39 MILLIGRAM, DAILY
     Route: 064

REACTIONS (2)
  - Dyspnoea [Unknown]
  - Foetal exposure during pregnancy [Unknown]
